FAERS Safety Report 6402787-5 (Version None)
Quarter: 2009Q4

REPORT INFORMATION
  Report Type: 
  Country: None (occurrence: None)
  Receive Date: 20091016
  Receipt Date: 20070308
  Transmission Date: 20100525
  Serious: Yes (Disabling)
  Sender: FDA-Public Use
  Company Number: US-ASTRAZENECA-2006UW08093

PATIENT
  Sex: Female
  Weight: 97.3 kg

DRUGS (60)
  1. SEROQUEL [Suspect]
     Dosage: 25 TO 500 MG
     Route: 048
     Dates: start: 20030116, end: 20050926
  2. TRICOR [Concomitant]
  3. ZETIA [Concomitant]
  4. AVAPRO [Concomitant]
  5. COLCHICINE [Concomitant]
  6. WELLBUTRIN [Concomitant]
  7. ACTOS [Concomitant]
  8. LAMICTAL [Concomitant]
  9. ASPIRIN [Concomitant]
  10. IMDUR [Concomitant]
  11. TORSEMIDE [Concomitant]
  12. PREVACID [Concomitant]
  13. LANTUS [Concomitant]
  14. ATENOLOL [Concomitant]
  15. PLETAL [Concomitant]
  16. KLONOPIN [Concomitant]
  17. CRESTOR [Concomitant]
  18. LASIX [Concomitant]
  19. CLARINEX [Concomitant]
  20. PROVIGIL [Concomitant]
  21. REQUIP [Concomitant]
  22. CATAPRES [Concomitant]
  23. ZOCOR [Concomitant]
  24. BENICAR [Concomitant]
  25. OMACOR [Concomitant]
  26. ZELNORM [Concomitant]
  27. EVISTA [Concomitant]
  28. ACTONEL [Concomitant]
  29. ZEGERID [Concomitant]
  30. CADUET [Concomitant]
  31. BONIVA [Concomitant]
  32. LIPITOR [Concomitant]
  33. DRISDOL [Concomitant]
  34. GABAPENTIN [Concomitant]
  35. TYLENOL [Concomitant]
  36. NORVASC [Concomitant]
  37. CLONIDINE [Concomitant]
  38. AVANDIA [Concomitant]
  39. MULTI-VITAMIN [Concomitant]
  40. ISOSORBIDE [Concomitant]
  41. ZANTAC [Concomitant]
  42. HYDROCHLOROTHIAZIDE [Concomitant]
  43. ROCALTROL [Concomitant]
  44. SOLU-MEDROL [Concomitant]
  45. ATROVENT [Concomitant]
  46. VITAMIN D [Concomitant]
  47. CHLORHEXIDINE GLUCONATE [Concomitant]
  48. LIDODERM [Concomitant]
  49. DESONIDE [Concomitant]
  50. ACCOLATE [Concomitant]
  51. RHINOCHORT AQUA NASAL [Concomitant]
  52. GEMFIBROZIL [Concomitant]
  53. TRAMADOL HYDROCHLORIDE [Concomitant]
  54. ALPRAZOLAM [Concomitant]
  55. GUAIFENESIN [Concomitant]
  56. PROMETHAZINE [Concomitant]
  57. TOPROL-XL [Concomitant]
  58. HUMALOG [Concomitant]
  59. METOCLOPRAMIDE [Concomitant]
  60. TEKTURNA [Concomitant]

REACTIONS (1)
  - ILL-DEFINED DISORDER [None]
